FAERS Safety Report 23580435 (Version 1)
Quarter: 2024Q1

REPORT INFORMATION
  Report Type: Spontaneous
  Country: NO (occurrence: NO)
  Receive Date: 20240229
  Receipt Date: 20240229
  Transmission Date: 20240410
  Serious: Yes (Other)
  Sender: FDA-Public Use
  Company Number: None

PATIENT
  Age: 30 Year
  Sex: Female

DRUGS (1)
  1. AJOVY [Suspect]
     Active Substance: FREMANEZUMAB-VFRM
     Indication: Migraine prophylaxis
     Route: 058
     Dates: start: 20231106, end: 20240104

REACTIONS (18)
  - Bradycardia [Unknown]
  - Balance disorder [Unknown]
  - Nausea [Recovering/Resolving]
  - Intermenstrual bleeding [Recovering/Resolving]
  - Blister [Unknown]
  - Loss of personal independence in daily activities [Unknown]
  - Nightmare [Unknown]
  - Alopecia [Unknown]
  - Middle insomnia [Unknown]
  - Menstruation irregular [Recovering/Resolving]
  - Dizziness [Unknown]
  - Insomnia [Unknown]
  - Dizziness [Unknown]
  - Brain fog [Unknown]
  - Poor quality sleep [Unknown]
  - Vulvovaginal ulceration [Unknown]
  - Impaired quality of life [Unknown]
  - Vulvovaginal pain [Unknown]
